FAERS Safety Report 10455808 (Version 1)
Quarter: 2014Q3

REPORT INFORMATION
  Report Type: Spontaneous
  Country: US (occurrence: None)
  Receive Date: 20140912
  Receipt Date: 20140912
  Transmission Date: 20150326
  Serious: Yes (Hospitalization, Other)
  Sender: FDA-Public Use
  Company Number: 2014CVI00028

PATIENT
  Age: 59 Year
  Sex: Female
  Weight: 122 kg

DRUGS (8)
  1. FRUSEMIDE [Concomitant]
     Active Substance: FUROSEMIDE
  2. RANITIDINE HCL [Suspect]
     Active Substance: RANITIDINE HYDROCHLORIDE
     Dates: start: 20050404
  3. TIOTROPIUM [Concomitant]
     Active Substance: TIOTROPIUM
  4. SALBUTAMOL SULPHATE [Suspect]
     Active Substance: ALBUTEROL SULFATE
     Dates: start: 20050509
  5. HYDROXYZINE [Concomitant]
     Active Substance: HYDROXYZINE\HYDROXYZINE HYDROCHLORIDE
  6. PHENOXYMETHYLPENICILLIN K [Suspect]
     Active Substance: PENICILLIN
  7. ALPRAZOLAM. [Concomitant]
     Active Substance: ALPRAZOLAM
  8. ACETAMINOPHEN AND CODEINE [Concomitant]
     Active Substance: ACETAMINOPHEN\CODEINE PHOSPHATE

REACTIONS (7)
  - Rhinitis [None]
  - Sleep apnoea syndrome [None]
  - Drug hypersensitivity [None]
  - Pickwickian syndrome [None]
  - Anogenital warts [None]
  - Substance abuse [None]
  - Pneumonia [None]
